FAERS Safety Report 25097242 (Version 1)
Quarter: 2025Q1

REPORT INFORMATION
  Report Type: Spontaneous
  Country: US (occurrence: US)
  Receive Date: 20250320
  Receipt Date: 20250320
  Transmission Date: 20250408
  Serious: Yes (Hospitalization, Other)
  Sender: AMGEN
  Company Number: US-AMGEN-USASP2025048904

PATIENT
  Age: 49 Year
  Sex: Male

DRUGS (5)
  1. PREDNISONE [Suspect]
     Active Substance: PREDNISONE
     Indication: Crohn^s disease
     Route: 065
  2. RISANKIZUMAB [Concomitant]
     Active Substance: RISANKIZUMAB
  3. RISANKIZUMAB [Concomitant]
     Active Substance: RISANKIZUMAB
  4. SKYRIZI [Concomitant]
     Active Substance: RISANKIZUMAB-RZAA
  5. VEDOLIZUMAB [Concomitant]
     Active Substance: VEDOLIZUMAB
     Route: 065

REACTIONS (6)
  - Cholangitis sclerosing [Unknown]
  - Transplant rejection [Unknown]
  - Ileal ulcer [Unknown]
  - Drug dependence [Unknown]
  - Crohn^s disease [Unknown]
  - Small intestinal stenosis [Unknown]
